FAERS Safety Report 25205128 (Version 5)
Quarter: 2025Q4

REPORT INFORMATION
  Report Type: Report from Study
  Country: US (occurrence: US)
  Receive Date: 20250416
  Receipt Date: 20251027
  Transmission Date: 20260118
  Serious: Yes (Other)
  Sender: ABBVIE
  Company Number: US-ABBVIE-6225774

PATIENT
  Age: 42 Year
  Sex: Female

DRUGS (4)
  1. RINVOQ [Suspect]
     Active Substance: UPADACITINIB
     Indication: Colitis ulcerative
     Dosage: FORM STRENGTH: 45 MG?LAST ADMIN DATE 2025
     Route: 048
     Dates: start: 202501
  2. RINVOQ [Suspect]
     Active Substance: UPADACITINIB
     Indication: Colitis ulcerative
     Dosage: STRENGTH:30MG, FIRST ADMIN DATE:2025
     Route: 048
     Dates: end: 202509
  3. RINVOQ [Suspect]
     Active Substance: UPADACITINIB
     Indication: Colitis ulcerative
     Dosage: STRENGTH: 30 MG
     Route: 048
  4. Cyclamycin [Concomitant]
     Indication: Product used for unknown indication

REACTIONS (21)
  - Haematochezia [Unknown]
  - Renal mass [Unknown]
  - Vomiting [Recovered/Resolved]
  - Product residue present [Unknown]
  - Flatulence [Not Recovered/Not Resolved]
  - Acne [Unknown]
  - Diarrhoea [Recovered/Resolved]
  - Mucous stools [Unknown]
  - Dyschezia [Unknown]
  - Paraesthesia [Unknown]
  - Muscular weakness [Unknown]
  - Musculoskeletal discomfort [Unknown]
  - Joint noise [Unknown]
  - Skin discolouration [Unknown]
  - Subcutaneous abscess [Unknown]
  - Gastrooesophageal reflux disease [Recovered/Resolved]
  - Insomnia [Unknown]
  - Anorectal stenosis [Unknown]
  - Nausea [Unknown]
  - Abdominal distension [Unknown]
  - Contusion [Not Recovered/Not Resolved]

NARRATIVE: CASE EVENT DATE: 20250101
